FAERS Safety Report 8342754-8 (Version None)
Quarter: 2012Q2

REPORT INFORMATION
  Report Type: 
  Country: None (occurrence: None)
  Receive Date: 20120503
  Receipt Date: 20120425
  Transmission Date: 20120825
  Serious: Yes (Hospitalization)
  Sender: FDA-Public Use
  Company Number: TPA2012A02399

PATIENT
  Age: 75 Year
  Sex: Male

DRUGS (7)
  1. LASIX [Concomitant]
  2. HYDRALAZINE HCL [Concomitant]
  3. ASPIRIN [Concomitant]
  4. INSULIN (INSULIN) [Concomitant]
  5. ISMO (AMLODIPINE) [Concomitant]
  6. ISMO [Concomitant]
  7. ULORIC [Suspect]

REACTIONS (2)
  - BACK PAIN [None]
  - FALL [None]
